FAERS Safety Report 5578444-4 (Version None)
Quarter: 2007Q4

REPORT INFORMATION
  Report Type: 
  Country: None (occurrence: None)
  Receive Date: 20071231
  Receipt Date: 20071219
  Transmission Date: 20080405
  Serious: Yes (Hospitalization, Disabling, Other)
  Sender: FDA-Public Use
  Company Number: JP-PFIZER INC-2007104177

PATIENT
  Sex: Female

DRUGS (9)
  1. LIPITOR [Interacting]
     Indication: HYPERLIPIDAEMIA
     Dosage: DAILY DOSE:10MG
     Route: 048
     Dates: start: 20030623, end: 20051103
  2. ACTOS [Suspect]
     Indication: DIABETES MELLITUS
     Dosage: DAILY DOSE:15MG
     Route: 048
     Dates: start: 20040224, end: 20051103
  3. AMARYL [Concomitant]
     Indication: DIABETES MELLITUS
  4. VOGLIBOSE [Concomitant]
     Indication: DIABETES MELLITUS
  5. TICLOPIDINE HYDROCHLORIDE [Concomitant]
     Indication: CEREBRAL INFARCTION
     Dates: start: 19940101, end: 20051103
  6. IFENPRODIL TARTRATE [Concomitant]
     Indication: CEREBRAL INFARCTION
     Dates: start: 19940101, end: 20051103
  7. DELAPRIL HYDROCHLORIDE [Concomitant]
     Indication: HYPERTENSION
     Dates: start: 19940101, end: 20051103
  8. METHYLDOPA/HYDROCHLOROTHIAZIDE [Concomitant]
     Indication: HYPERTENSION
     Dates: start: 20040224, end: 20051103
  9. LOSARTAN POTASSIUM [Concomitant]
     Indication: HYPERTENSION
     Dates: start: 20030623, end: 20051103

REACTIONS (8)
  - ANURIA [None]
  - CARDIAC FAILURE CONGESTIVE [None]
  - DIALYSIS [None]
  - DIARRHOEA [None]
  - DRUG INTERACTION [None]
  - RENAL FAILURE [None]
  - RHABDOMYOLYSIS [None]
  - VOMITING [None]
